FAERS Safety Report 6198563-1 (Version None)
Quarter: 2009Q2

REPORT INFORMATION
  Report Type: 
  Country: None (occurrence: None)
  Receive Date: 20090521
  Receipt Date: 20090521
  Transmission Date: 20091009
  Serious: Yes (Other)
  Sender: FDA-Public Use
  Company Number: US-PFIZER INC-2008057878

PATIENT
  Sex: Female
  Weight: 81.6 kg

DRUGS (11)
  1. CHANTIX [Suspect]
     Indication: SMOKING CESSATION THERAPY
     Dosage: 1 MG, 2X/DAY
     Dates: start: 20080101, end: 20080101
  2. NEXIUM [Concomitant]
  3. NEURONTIN [Concomitant]
     Indication: PAIN
  4. URSODIOL [Concomitant]
  5. NORCO [Concomitant]
     Indication: PAIN
  6. DESYREL [Concomitant]
  7. VENTOLIN [Concomitant]
  8. ADVAIR HFA [Concomitant]
  9. ANTIDEPRESSANTS [Concomitant]
     Dosage: UNK
  10. CINNAMON [Concomitant]
     Indication: RESTLESS LEGS SYNDROME
  11. ALL OTHER THERAPEUTIC PRODUCTS [Concomitant]

REACTIONS (6)
  - ABNORMAL BEHAVIOUR [None]
  - COGNITIVE DISORDER [None]
  - DYSKINESIA [None]
  - DYSPNOEA [None]
  - MENTAL IMPAIRMENT [None]
  - TREMOR [None]
